FAERS Safety Report 9180048 (Version 1)
Quarter: 2013Q1

REPORT INFORMATION
  Report Type: Spontaneous
  Country: GB (occurrence: GB)
  Receive Date: 20130321
  Receipt Date: 20130321
  Transmission Date: 20140127
  Serious: Yes (Other)
  Sender: FDA-Public Use
  Company Number: GB-ACTAVIS-EU-(XML)-2013-04745

PATIENT
  Age: 35 Year
  Sex: Male

DRUGS (1)
  1. PREDNISOLONE (UNKNOWN) [Suspect]
     Indication: INFLAMMATORY BOWEL DISEASE
     Dosage: 40 MG, DAILY
     Route: 065

REACTIONS (2)
  - Deep vein thrombosis [Unknown]
  - Bone density decreased [Unknown]
